FAERS Safety Report 5050431-4 (Version None)
Quarter: 2006Q2

REPORT INFORMATION
  Report Type: 
  Country: None (occurrence: None)
  Receive Date: 20060614
  Receipt Date: 20060303
  Transmission Date: 20061013
  Serious: Yes (Other)
  Sender: FDA-Public Use
  Company Number: 431284

PATIENT
  Sex: Female

DRUGS (5)
  1. BONIVA [Suspect]
     Indication: DRUG USE FOR UNKNOWN INDICATION
     Dosage: ORAL
     Route: 048
  2. MOBIC [Concomitant]
  3. PROTONIX [Concomitant]
  4. HYZAAR [Concomitant]
  5. NORVASC [Concomitant]

REACTIONS (6)
  - ANOREXIA [None]
  - BACK PAIN [None]
  - BONE PAIN [None]
  - CHEST PAIN [None]
  - FLATULENCE [None]
  - MUSCULOSKELETAL PAIN [None]
